FAERS Safety Report 20144307 (Version 3)
Quarter: 2022Q1

REPORT INFORMATION
  Report Type: Spontaneous
  Country: US (occurrence: US)
  Receive Date: 20211203
  Receipt Date: 20220217
  Transmission Date: 20220423
  Serious: No
  Sender: FDA-Public Use
  Company Number: US-PFIZER INC-202101532510

PATIENT
  Age: 11 Year
  Sex: Female
  Weight: 52.154 kg

DRUGS (3)
  1. GENOTROPIN [Suspect]
     Active Substance: SOMATROPIN
     Indication: Hormone replacement therapy
     Dosage: UNK
  2. GENOTROPIN [Suspect]
     Active Substance: SOMATROPIN
     Dosage: 2 MG, DAILY (BY INJECTION EVERY NIGHT)
     Dates: start: 202101
  3. GENOTROPIN [Suspect]
     Active Substance: SOMATROPIN
     Dosage: 2 MG, DAILY (BY INJECTION EVERY NIGHT)
     Dates: start: 202101

REACTIONS (1)
  - Device physical property issue [Unknown]

NARRATIVE: CASE EVENT DATE: 20211104
